FAERS Safety Report 5571234-8 (Version None)
Quarter: 2007Q4

REPORT INFORMATION
  Report Type: 
  Country: None (occurrence: None)
  Receive Date: 20071221
  Receipt Date: 20070305
  Transmission Date: 20080405
  Serious: No
  Sender: FDA-Public Use
  Company Number: A0641873A

PATIENT
  Age: 45 Year
  Sex: Male

DRUGS (3)
  1. FLONASE [Suspect]
     Dosage: 2SPR PER DAY
     Route: 045
     Dates: start: 20060501
  2. ADVAIR DISKUS 100/50 [Concomitant]
  3. SINGULAIR [Concomitant]

REACTIONS (1)
  - AGEUSIA [None]
